FAERS Safety Report 15357142 (Version 5)
Quarter: 2018Q4

REPORT INFORMATION
  Report Type: Report from Study
  Country: US (occurrence: US)
  Receive Date: 20180906
  Receipt Date: 20181213
  Transmission Date: 20190204
  Serious: Yes (Hospitalization)
  Sender: FDA-Public Use
  Company Number: PHHO2018US009861

PATIENT
  Age: 10 Year
  Sex: Male

DRUGS (5)
  1. GSK2118436 [Suspect]
     Active Substance: DABRAFENIB
     Dosage: DOSE REDUCED
     Route: 048
     Dates: start: 20181012
  2. GSK1120212 [Suspect]
     Active Substance: TRAMETINIB
     Indication: MALIGNANT MELANOMA
     Dosage: 1.25 MG, QD
     Route: 048
     Dates: start: 20180821
  3. GSK1120212 [Suspect]
     Active Substance: TRAMETINIB
     Dosage: 1.25 MG, QD
     Route: 048
     Dates: start: 20181010
  4. GSK2118436 [Suspect]
     Active Substance: DABRAFENIB
     Indication: MALIGNANT MELANOMA
     Dosage: 125 MG, BID
     Route: 048
     Dates: start: 20180821, end: 20180909
  5. ATIVAN [Concomitant]
     Active Substance: LORAZEPAM
     Indication: PRODUCT USED FOR UNKNOWN INDICATION
     Dosage: 0.5 MG, QD
     Route: 048

REACTIONS (1)
  - Pyrexia [Recovered/Resolved]

NARRATIVE: CASE EVENT DATE: 20180909
